FAERS Safety Report 5564664-1 (Version None)
Quarter: 2007Q4

REPORT INFORMATION
  Report Type: 
  Country: None (occurrence: None)
  Receive Date: 20071218
  Receipt Date: 20071208
  Transmission Date: 20080405
  Serious: No
  Sender: FDA-Public Use
  Company Number: US-ASTRAZENECA-2006UW12880

PATIENT
  Age: 27 Year
  Sex: Female
  Weight: 108.9 kg

DRUGS (7)
  1. SEROQUEL [Suspect]
     Indication: BIPOLAR DISORDER
     Route: 048
  2. SEROQUEL [Suspect]
     Route: 048
  3. LAMICTAL [Concomitant]
  4. LITHIUM CARBONATE [Concomitant]
  5. ESTROGEN [Concomitant]
  6. KLONOPIN [Concomitant]
  7. RISPERDAL [Concomitant]

REACTIONS (4)
  - BIPOLAR DISORDER [None]
  - SLEEP TERROR [None]
  - WEIGHT INCREASED [None]
  - WHITE BLOOD CELL COUNT INCREASED [None]
